FAERS Safety Report 5362950-1 (Version None)
Quarter: 2007Q2

REPORT INFORMATION
  Report Type: 
  Country: None (occurrence: None)
  Receive Date: 20070619
  Receipt Date: 20070611
  Transmission Date: 20071010
  Serious: Yes (Other)
  Sender: FDA-Public Use
  Company Number: DE-GENENTECH-243187

PATIENT
  Sex: Male

DRUGS (2)
  1. MABTHERA [Suspect]
     Indication: LEUKAEMIA
     Route: 042
  2. BENDAMUSTINE [Concomitant]
     Indication: LEUKAEMIA

REACTIONS (1)
  - GUILLAIN-BARRE SYNDROME [None]
